FAERS Safety Report 6716435-8 (Version None)
Quarter: 2010Q2

REPORT INFORMATION
  Report Type: 
  Country: None (occurrence: None)
  Receive Date: 20100507
  Receipt Date: 20100427
  Transmission Date: 20101027
  Serious: Yes (Hospitalization)
  Sender: FDA-Public Use
  Company Number: US-MYLANLABS-2010S1007294

PATIENT
  Age: 89 Year
  Sex: Female
  Weight: 49.9 kg

DRUGS (5)
  1. HALOPERIDOL [Interacting]
     Route: 048
     Dates: start: 20100210, end: 20100303
  2. RISPERIDONE [Suspect]
     Dates: start: 20100303, end: 20100303
  3. ZOLOFT [Concomitant]
  4. LYRICA [Concomitant]
  5. TRAMADOL [Concomitant]

REACTIONS (6)
  - ABASIA [None]
  - AMNESIA [None]
  - APHONIA [None]
  - CONSTIPATION [None]
  - DRUG INTERACTION [None]
  - IMPAIRED SELF-CARE [None]
